FAERS Safety Report 9396866 (Version 1)
Quarter: 2013Q3

REPORT INFORMATION
  Report Type: Spontaneous
  Country: US (occurrence: None)
  Receive Date: 20130710
  Receipt Date: 20130710
  Transmission Date: 20140515
  Serious: Yes (Disabling)
  Sender: FDA-Public Use
  Company Number: None

PATIENT
  Age: 25 Year
  Sex: Female
  Weight: 102 kg

DRUGS (2)
  1. BELATACEPT [Suspect]
     Indication: RENAL TRANSPLANT
     Dosage: 5MG/KG EVERY 2 WEEKS IV
     Route: 042
     Dates: start: 20130228, end: 20130411
  2. BELATACEPT [Suspect]
     Indication: IMMUNOSUPPRESSION
     Dosage: 5MG/KG EVERY 2 WEEKS IV
     Route: 042
     Dates: start: 20130228, end: 20130411

REACTIONS (6)
  - Pyrexia [None]
  - Blood creatinine increased [None]
  - Arteritis [None]
  - Transplant rejection [None]
  - Haemodialysis [None]
  - Pain [None]
